FAERS Safety Report 23592912 (Version 2)
Quarter: 2024Q1

REPORT INFORMATION
  Report Type: Spontaneous
  Country: US (occurrence: US)
  Receive Date: 20240304
  Receipt Date: 20240314
  Transmission Date: 20240410
  Serious: No
  Sender: FDA-Public Use
  Company Number: US-PFIZER INC-2021130127

PATIENT
  Age: 79 Year
  Sex: Female

DRUGS (2)
  1. IBRANCE [Suspect]
     Active Substance: PALBOCICLIB
     Indication: Bone cancer metastatic
     Dosage: ONCE DAILY. FOR 21 DAYS ON, 7 DAYS OFF.
     Route: 048
     Dates: start: 20220908, end: 20231108
  2. LYRICA [Concomitant]
     Active Substance: PREGABALIN
     Dosage: 100 MG, 2X/DAY(FOR 90 DAYS)
     Route: 048

REACTIONS (1)
  - Blood glucose increased [Unknown]
